FAERS Safety Report 16347889 (Version 1)
Quarter: 2019Q2

REPORT INFORMATION
  Report Type: Spontaneous
  Country: GB (occurrence: GB)
  Receive Date: 20190523
  Receipt Date: 20190523
  Transmission Date: 20190711
  Serious: Yes (Other)
  Sender: FDA-Public Use
  Company Number: GB-MYLANLABS-2019M1047370

PATIENT
  Age: 39 Year
  Sex: Female
  Weight: 122 kg

DRUGS (9)
  1. METOPROLOL TARTRATE. [Concomitant]
     Active Substance: METOPROLOL TARTRATE
     Dosage: 1 DOSAGE FORM, QD
     Dates: start: 20170223
  2. AMLODIPINE [Suspect]
     Active Substance: AMLODIPINE BESYLATE
     Indication: HYPERTENSION
     Dosage: 5 MILLIGRAM, QD
     Dates: start: 20180427
  3. VALSARTAN. [Concomitant]
     Active Substance: VALSARTAN
     Dosage: 1 DOSAGE FORM, QD
     Dates: start: 20170223
  4. COCODAMOL [Concomitant]
     Active Substance: ACETAMINOPHEN\CODEINE PHOSPHATE
     Dosage: 8 DOSAGE FORM, QD
     Dates: start: 20180909, end: 20180916
  5. MOXONIDINE [Concomitant]
     Active Substance: MOXONIDINE
     Dosage: ONE IN MORNING AND ONE IN EVENING
     Dates: start: 20170223
  6. RANITIDINE. [Concomitant]
     Active Substance: RANITIDINE
     Dosage: 2 DOSAGE FORM, QD
     Dates: start: 20180723, end: 20180802
  7. NAPROXEN. [Concomitant]
     Active Substance: NAPROXEN
     Dosage: 2 DOSAGE FORM, QD
     Dates: start: 20180708, end: 20180715
  8. ACETYLSALICYLIC ACID [Concomitant]
     Active Substance: ASPIRIN
     Dosage: 1 DOSAGE FORM, QD
     Dates: start: 20170223
  9. OMEPRAZOLE. [Concomitant]
     Active Substance: OMEPRAZOLE
     Dosage: 1 DOSAGE FORM, QD
     Dates: start: 20180708, end: 20180715

REACTIONS (1)
  - Lip swelling [Unknown]

NARRATIVE: CASE EVENT DATE: 20180927
